FAERS Safety Report 8964348 (Version 1)
Quarter: 2012Q4

REPORT INFORMATION
  Report Type: 
  Country: US (occurrence: US)
  Receive Date: 20121214
  Receipt Date: 20121214
  Transmission Date: 20130627
  Serious: No
  Sender: FDA-Public Use
  Company Number: US-PFIZER INC-2012313610

PATIENT
  Age: 75 Year
  Sex: Female
  Weight: 58.95 kg

DRUGS (2)
  1. PREMARIN [Suspect]
     Indication: HOT FLASHES
     Dosage: UNK,1x/day
     Route: 048
     Dates: start: 2011, end: 201111
  2. METFORMIN [Concomitant]
     Indication: DIABETES
     Dosage: UNK

REACTIONS (2)
  - Migraine [Recovered/Resolved]
  - Cold sweat [Not Recovered/Not Resolved]
